FAERS Safety Report 6765177-1 (Version None)
Quarter: 2010Q2

REPORT INFORMATION
  Report Type: 
  Country: None (occurrence: None)
  Receive Date: 20100610
  Receipt Date: 20100610
  Transmission Date: 20101027
  Serious: Yes (Disabling)
  Sender: FDA-Public Use
  Company Number: None

PATIENT
  Sex: Female
  Weight: 88.4514 kg

DRUGS (1)
  1. ACCUTANE [Suspect]
     Indication: ACNE
     Dosage: 2X'S PER DAY PO
     Route: 048
     Dates: start: 19921001, end: 19950401

REACTIONS (6)
  - DYSPEPSIA [None]
  - EATING DISORDER [None]
  - GASTROOESOPHAGEAL REFLUX DISEASE [None]
  - IRRITABLE BOWEL SYNDROME [None]
  - THROAT IRRITATION [None]
  - VOMITING [None]
